FAERS Safety Report 7592145-2 (Version None)
Quarter: 2011Q2

REPORT INFORMATION
  Report Type: 
  Country: None (occurrence: None)
  Receive Date: 20110608
  Receipt Date: 20110419
  Transmission Date: 20111010
  Serious: Yes (Other)
  Sender: FDA-Public Use
  Company Number: US-005302

PATIENT
  Age: 62 Year
  Sex: Male

DRUGS (2)
  1. DDAVP [Suspect]
     Indication: PRODUCT USED FOR UNKNOWN INDICATION
     Dosage: (ORAL)
     Route: 048
     Dates: start: 20110401
  2. DDAVP [Suspect]
     Indication: PRODUCT USED FOR UNKNOWN INDICATION
     Dosage: (NASAL), A FEW YEARS
     Route: 045
     Dates: end: 20110401

REACTIONS (2)
  - ARTERIAL OCCLUSIVE DISEASE [None]
  - DRUG INEFFECTIVE [None]
